FAERS Safety Report 4994640-9 (Version None)
Quarter: 2006Q2

REPORT INFORMATION
  Report Type: 
  Country: None (occurrence: None)
  Receive Date: 20060505
  Receipt Date: 20050930
  Transmission Date: 20061013
  Serious: Yes (Hospitalization)
  Sender: FDA-Public Use
  Company Number: PR-MERCK-0510USA01545

PATIENT
  Age: 74 Year
  Sex: Male
  Weight: 75 kg

DRUGS (2)
  1. VIOXX [Suspect]
     Indication: RHEUMATOID ARTHRITIS
     Route: 048
     Dates: end: 20030101
  2. ASPIRIN [Concomitant]
     Route: 065

REACTIONS (12)
  - ADVERSE EVENT [None]
  - ANAEMIA [None]
  - ARRHYTHMIA [None]
  - ARTERIOSCLEROSIS [None]
  - BRAIN STEM INFARCTION [None]
  - CARDIOVASCULAR DISORDER [None]
  - CEREBROVASCULAR ACCIDENT [None]
  - MYOCARDIAL INFARCTION [None]
  - ORGAN FAILURE [None]
  - PULMONARY EMBOLISM [None]
  - THROMBOSIS [None]
  - UPPER GASTROINTESTINAL HAEMORRHAGE [None]
